FAERS Safety Report 6923240-6 (Version None)
Quarter: 2010Q3

REPORT INFORMATION
  Report Type: 
  Country: None (occurrence: None)
  Receive Date: 20100813
  Receipt Date: 20100802
  Transmission Date: 20110219
  Serious: Yes (Hospitalization)
  Sender: FDA-Public Use
  Company Number: US-ROCHE-719273

PATIENT
  Sex: Female

DRUGS (2)
  1. AVASTIN [Suspect]
     Route: 042
     Dates: start: 20091028, end: 20100707
  2. ABRAXANE [Suspect]
     Dosage: FREQUENCY: WEEKLY X 3, OFF X 1
     Route: 042
     Dates: start: 20091028, end: 20100707

REACTIONS (6)
  - ANAEMIA [None]
  - ASCITES [None]
  - CARDIAC FAILURE CONGESTIVE [None]
  - HYPONATRAEMIA [None]
  - LEUKOCYTOSIS [None]
  - THROMBOCYTOPENIA [None]
